FAERS Safety Report 9712727 (Version 1)
Quarter: 2013Q4

REPORT INFORMATION
  Report Type: Spontaneous
  Country: US (occurrence: US)
  Receive Date: 20131126
  Receipt Date: 20131126
  Transmission Date: 20140711
  Serious: No
  Sender: FDA-Public Use
  Company Number: US-BRISTOL-MYERS SQUIBB COMPANY-19217561

PATIENT
  Age: 57 Year
  Sex: Male
  Weight: 112.47 kg

DRUGS (2)
  1. BYDUREON [Suspect]
     Indication: TYPE 2 DIABETES MELLITUS
     Dosage: PRESCRIPTION#:56754841
     Dates: start: 2013
  2. METFORMIN [Concomitant]
     Route: 048

REACTIONS (3)
  - Injection site mass [Not Recovered/Not Resolved]
  - Injection site pain [Recovering/Resolving]
  - Urticaria [Not Recovered/Not Resolved]
